FAERS Safety Report 8894650 (Version 1)
Quarter: 2012Q4

REPORT INFORMATION
  Report Type: 
  Country: US (occurrence: US)
  Receive Date: 20121107
  Receipt Date: 20121107
  Transmission Date: 20130627
  Serious: No
  Sender: FDA-Public Use
  Company Number: US-AMGEN-USASP2011050458

PATIENT
  Age: 56 Year
  Weight: 106 kg

DRUGS (8)
  1. ENBREL [Suspect]
     Indication: PRODUCT USED FOR UNKNOWN INDICATION
     Dosage: 50 mg, qwk
     Route: 058
  2. MULTIVITAMIN [Concomitant]
     Dosage: UNK
  3. FISH OIL [Concomitant]
     Dosage: UNK
  4. VITAMIN D [Concomitant]
     Dosage: UNK
  5. GLUCOSAMINE + CHONDROITIN [Concomitant]
     Dosage: UNK
  6. GARLIC [Concomitant]
     Dosage: 300 mg, UNK
  7. NAPROXEN [Concomitant]
     Dosage: 500 mg, UNK
  8. CLARITIN-D [Concomitant]
     Dosage: UNK

REACTIONS (1)
  - Injection site erythema [Unknown]
